FAERS Safety Report 18346803 (Version 1)
Quarter: 2020Q4

REPORT INFORMATION
  Report Type: Spontaneous
  Country: US (occurrence: US)
  Receive Date: 20201006
  Receipt Date: 20201006
  Transmission Date: 20210114
  Serious: Yes (Hospitalization, Other)
  Sender: FDA-Public Use
  Company Number: US-GLENMARK PHARMACEUTICALS-2020GMK049803

PATIENT
  Age: 36 Year
  Sex: Female

DRUGS (5)
  1. OXYCODONE [Suspect]
     Active Substance: OXYCODONE
     Indication: MIGRAINE
     Dosage: 20 MILLIGRAM, QD (BEDTIME PRO RE NATA (PRN), OXYCODONE IMMEDIATE RELEASE)
     Route: 048
  2. OXYCODONE [Suspect]
     Active Substance: OXYCODONE
     Dosage: 10 MILLIGRAM, 4 HOURS PRN (PRO RE NATA)
     Route: 065
  3. OXYCODONE [Suspect]
     Active Substance: OXYCODONE
     Dosage: 30 MILLIGRAM, BID; EXTENDED RELEASE
     Route: 065
  4. OXYCODONE [Suspect]
     Active Substance: OXYCODONE
     Dosage: 30 MILLIGRAM, BID; IMMEDIATE RELEASE
     Route: 065
  5. LAMOTRIGINE. [Suspect]
     Active Substance: LAMOTRIGINE
     Indication: BIPOLAR DISORDER
     Dosage: 200 MILLIGRAM, QD
     Route: 048

REACTIONS (5)
  - Bedridden [Recovering/Resolving]
  - Drug abuse [Recovered/Resolved]
  - Weight decreased [Unknown]
  - Medication overuse headache [Recovered/Resolved]
  - Meningitis aseptic [Recovering/Resolving]
